FAERS Safety Report 8835026 (Version 3)
Quarter: 2013Q1

REPORT INFORMATION
  Report Type: Report from Study
  Country: KR (occurrence: KR)
  Receive Date: 20121011
  Receipt Date: 20130205
  Transmission Date: 20140127
  Serious: Yes (Hospitalization)
  Sender: FDA-Public Use
  Company Number: KR-009507513-1206USA04591

PATIENT
  Age: 11 Year
  Sex: Female
  Weight: 30 kg

DRUGS (12)
  1. APREPITANT [Suspect]
     Indication: PROPHYLAXIS OF NAUSEA AND VOMITING
     Dosage: 3.6 ML, ONCE
     Route: 048
     Dates: start: 20120604, end: 20120604
  2. APREPITANT [Suspect]
     Dosage: 2.4 ML, QD
     Route: 048
     Dates: start: 20120605, end: 20120606
  3. APREPITANT [Suspect]
     Dosage: 3.54 ML, ONCE
     Route: 048
     Dates: start: 20120715, end: 20120715
  4. ONDANSETRON [Suspect]
     Indication: PROPHYLAXIS OF NAUSEA AND VOMITING
     Dosage: 8 MG, QD
     Route: 042
     Dates: start: 20120604, end: 20120606
  5. ONDANSETRON [Suspect]
     Dosage: 8 MG, QD
     Route: 042
     Dates: start: 20120715, end: 20120717
  6. CISPLATIN [Suspect]
     Indication: CHEMOTHERAPY
     Dosage: 132 MG, QD
     Route: 042
     Dates: start: 20120604, end: 20120604
  7. CISPLATIN [Suspect]
     Indication: CHEMOTHERAPY
     Dosage: 128 MG, QD
     Route: 042
     Dates: start: 20120715, end: 20120715
  8. CISPLATIN [Suspect]
     Indication: CHEMOTHERAPY
     Dosage: 130 MG, QD
     Route: 042
     Dates: start: 20120829, end: 20120829
  9. ADRIAMYCIN [Suspect]
     Indication: CHEMOTHERAPY
     Dosage: 27.5 MG, QD
     Route: 042
     Dates: start: 20120604, end: 20120607
  10. ADRIAMYCIN [Suspect]
     Indication: CHEMOTHERAPY
     Dosage: 27 MG, QD
     Route: 042
     Dates: start: 20120715, end: 20120718
  11. ADRIAMYCIN [Suspect]
     Dosage: 27 MG, QD
     Route: 042
     Dates: start: 20120829, end: 20120901
  12. CARDIOXANE [Suspect]
     Indication: CARDIOVASCULAR EVENT PROPHYLAXIS
     Dosage: 91.63 MG, TID
     Route: 042
     Dates: start: 20120604, end: 20120606

REACTIONS (3)
  - Asthenia [Recovered/Resolved]
  - Vomiting [Recovered/Resolved]
  - Febrile neutropenia [Recovered/Resolved]
